FAERS Safety Report 4795856-7 (Version None)
Quarter: 2005Q4

REPORT INFORMATION
  Report Type: 
  Country: None (occurrence: None)
  Receive Date: 20051012
  Receipt Date: 20050812
  Transmission Date: 20060501
  Serious: Yes (Hospitalization, Disabling)
  Sender: FDA-Public Use
  Company Number: DEWYE901812AUG05

PATIENT
  Age: 67 Year
  Sex: Female

DRUGS (7)
  1. ENBREL [Suspect]
     Indication: RHEUMATOID ARTHRITIS
     Route: 058
     Dates: start: 20031201, end: 20040728
  2. DECORTIN-H [Concomitant]
     Dosage: UNKNOWN
     Dates: start: 19980501, end: 20041201
  3. VIGANTOLETTEN [Concomitant]
  4. CALCIUM GLUCONATE [Concomitant]
  5. DOXAZOSIN [Concomitant]
  6. TOCOPHEROL CONCENTRATE CAP [Concomitant]
  7. METHOTREXATE [Concomitant]
     Dates: start: 20020301, end: 20040724

REACTIONS (4)
  - ARTHRITIS BACTERIAL [None]
  - FISTULA [None]
  - JOINT RANGE OF MOTION DECREASED [None]
  - MYCOBACTERIUM AVIUM COMPLEX INFECTION [None]
